FAERS Safety Report 8539449-4 (Version None)
Quarter: 2012Q3

REPORT INFORMATION
  Report Type: 
  Country: None (occurrence: None)
  Receive Date: 20120716
  Receipt Date: 20120706
  Transmission Date: 20120928
  Serious: Yes (Congenital Anomaly)
  Sender: FDA-Public Use
  Company Number: AUR-APL-2012-02950

PATIENT

DRUGS (1)
  1. CITALOPRAM HYDROBROMIDE [Suspect]
     Indication: DEPRESSION
     Dosage: 20 MG DAILYK TRANSPLACENTAL
     Route: 064
     Dates: start: 20090101, end: 20120517

REACTIONS (3)
  - MATERNAL DRUGS AFFECTING FOETUS [None]
  - HYPOPLASTIC LEFT HEART SYNDROME [None]
  - CONGENITAL ANOMALY [None]
